FAERS Safety Report 11379173 (Version 1)
Quarter: 2015Q3

REPORT INFORMATION
  Report Type: Spontaneous
  Country: IT (occurrence: None)
  Receive Date: 20150812
  Receipt Date: 20150812
  Transmission Date: 20151125
  Serious: Yes (Other)
  Sender: FDA-Public Use
  Company Number: 2015RR-101173

PATIENT
  Age: 49 Year
  Sex: Female

DRUGS (3)
  1. BISOPROLOL FUMARATE. [Concomitant]
     Active Substance: BISOPROLOL FUMARATE
  2. EUTIROX (LEVOTHYROXINE) [Concomitant]
  3. CARBOPLATIN (CARBOPLATIN) UNKNOWN [Suspect]
     Active Substance: CARBOPLATIN
     Indication: PRODUCT USED FOR UNKNOWN INDICATION
     Dosage: CYCLICAL
     Route: 042
     Dates: start: 20150723, end: 20150723

REACTIONS (4)
  - Dyspnoea [None]
  - Feeling hot [None]
  - Hypertension [None]
  - Pruritus [None]

NARRATIVE: CASE EVENT DATE: 20150723
